FAERS Safety Report 7523557-0 (Version None)
Quarter: 2011Q2

REPORT INFORMATION
  Report Type: 
  Country: None (occurrence: None)
  Receive Date: 20110603
  Receipt Date: 20110531
  Transmission Date: 20111010
  Serious: Yes (Other)
  Sender: FDA-Public Use
  Company Number: GXBR2011US02104

PATIENT

DRUGS (1)
  1. OMNITROPE [Suspect]
     Dosage: UNK DF, UNK

REACTIONS (2)
  - CONVULSION [None]
  - EPILEPSY [None]
